FAERS Safety Report 10206989 (Version 2)
Quarter: 2014Q2

REPORT INFORMATION
  Report Type: Spontaneous
  Country: US (occurrence: None)
  Receive Date: 20140527
  Receipt Date: 20140612
  Transmission Date: 20141212
  Serious: Yes (Hospitalization)
  Sender: FDA-Public Use
  Company Number: UNT-2014-000173

PATIENT
  Age: 77 Year
  Sex: Male
  Weight: 77.1 kg

DRUGS (3)
  1. REMODULIN [Suspect]
     Indication: COR PULMONALE CHRONIC
     Dosage: 0.060 UG/KG/MIN, CONTINUING, SUBCUTANEOUS
     Route: 058
     Dates: start: 20131217
  2. TRACLEER /01587701/ (BOSENTAN) [Concomitant]
  3. ADCIRCA (TADALAFIL) [Concomitant]

REACTIONS (1)
  - Dyspnoea [None]
